FAERS Safety Report 9248184 (Version 3)
Quarter: 2013Q2

REPORT INFORMATION
  Report Type: Spontaneous
  Country: US (occurrence: US)
  Receive Date: 20130423
  Receipt Date: 20130607
  Transmission Date: 20140414
  Serious: No
  Sender: FDA-Public Use
  Company Number: US-PFIZER INC-2013124566

PATIENT
  Age: 41 Year
  Sex: Female
  Weight: 81.63 kg

DRUGS (2)
  1. CELEBREX [Suspect]
     Indication: PROCEDURAL PAIN
     Dosage: 200 MG, 2X/DAY (Q 12 H)
     Route: 048
     Dates: start: 19710419, end: 20120423
  2. LORTAB [Concomitant]
     Indication: PROCEDURAL PAIN
     Dosage: 5/325 MG (1 PO), Q 4-6 HR PRN
     Route: 048
     Dates: start: 20120419

REACTIONS (3)
  - Nausea [Recovered/Resolved]
  - Feeling abnormal [Recovered/Resolved]
  - Malaise [Recovered/Resolved]
